FAERS Safety Report 5999097-7 (Version None)
Quarter: 2008Q4

REPORT INFORMATION
  Report Type: 
  Country: None (occurrence: None)
  Receive Date: 20081211
  Receipt Date: 20081201
  Transmission Date: 20090506
  Serious: Yes (Death, Hospitalization)
  Sender: FDA-Public Use
  Company Number: 08-001932

PATIENT
  Sex: Female

DRUGS (2)
  1. DORYX [Suspect]
     Indication: CELLULITIS
  2. MODAFINIL [Suspect]

REACTIONS (6)
  - CARDIAC FAILURE [None]
  - DRUG HYPERSENSITIVITY [None]
  - DYSURIA [None]
  - PELVIC PAIN [None]
  - SWELLING FACE [None]
  - VISION BLURRED [None]
